FAERS Safety Report 13238750 (Version 1)
Quarter: 2017Q1

REPORT INFORMATION
  Report Type: Spontaneous
  Country: US (occurrence: US)
  Receive Date: 20170216
  Receipt Date: 20170216
  Transmission Date: 20170428
  Serious: Yes (Other)
  Sender: FDA-Public Use
  Company Number: US-CLINIGEN GROUP PLC/ CLINIGEN HEALTHCARE LTD-E2B_00001994

PATIENT
  Age: 78 Year
  Sex: Female
  Weight: 74 kg

DRUGS (7)
  1. CELEBREX [Concomitant]
     Active Substance: CELECOXIB
     Route: 065
  2. RADIATION THERAPY [Concomitant]
     Active Substance: RADIATION THERAPY
     Route: 050
     Dates: start: 20040427
  3. LEUCOVORIN. [Concomitant]
     Active Substance: LEUCOVORIN
     Route: 065
  4. ETHYOL [Suspect]
     Active Substance: AMIFOSTINE
     Indication: PROPHYLAXIS
     Dosage: 500 MG 2 DOSE(S)
     Route: 058
     Dates: start: 20040427, end: 20040428
  5. CARBOPLATIN. [Concomitant]
     Active Substance: CARBOPLATIN
     Dosage: 14 DAY(S)
     Route: 065
     Dates: start: 20040420, end: 20040503
  6. TAXOL [Concomitant]
     Active Substance: PACLITAXEL
     Dosage: 14 DAY(S)
     Route: 065
     Dates: start: 20040420, end: 20040503
  7. 5-FU [Concomitant]
     Active Substance: FLUOROURACIL
     Dosage: 14 DAY(S)
     Route: 065
     Dates: start: 20040420, end: 20040503

REACTIONS (3)
  - Nausea [Unknown]
  - Loss of consciousness [Unknown]
  - Vomiting [Unknown]

NARRATIVE: CASE EVENT DATE: 20040428
